FAERS Safety Report 5441717-X (Version None)
Quarter: 2007Q3

REPORT INFORMATION
  Report Type: 
  Country: None (occurrence: None)
  Receive Date: 20070829
  Receipt Date: 20070811
  Transmission Date: 20080115
  Serious: Yes (Other)
  Sender: FDA-Public Use
  Company Number: ENT 2007-0134

PATIENT
  Age: 52 Year
  Sex: Male

DRUGS (2)
  1. COMTAN [Suspect]
     Indication: DRUG EFFECT DECREASED
     Dosage: 300 MG (100 MG, 3 IN 1 D) ORAL
     Route: 048
     Dates: start: 20070701
  2. LEVODOPA  W/BENESERAZIDE [Suspect]
     Indication: PARKINSON'S DISEASE

REACTIONS (2)
  - ABNORMAL BEHAVIOUR [None]
  - DELUSIONAL DISORDER, PERSECUTORY TYPE [None]
